FAERS Safety Report 4370877-7 (Version None)
Quarter: 2004Q2

REPORT INFORMATION
  Report Type: 
  Country: None (occurrence: None)
  Receive Date: 20040601
  Receipt Date: 20040517
  Transmission Date: 20050107
  Serious: Yes (Other)
  Sender: FDA-Public Use
  Company Number: JP-JNJFOC-20040505939

PATIENT
  Age: 42 Year
  Sex: Male

DRUGS (3)
  1. HALDOL [Suspect]
     Indication: SCHIZOPHRENIA
     Dosage: INTRA-MUSCULAR
     Route: 030
  2. SULTOPRIDE (SULTOPRIDE) [Suspect]
  3. BIPERIDEN (BIPERIDEN) [Suspect]
     Indication: ADVERSE EVENT

REACTIONS (3)
  - DIABETES MELLITUS [None]
  - TYPE V HYPERLIPIDAEMIA [None]
  - XANTHOMA [None]
